FAERS Safety Report 7914646-7 (Version None)
Quarter: 2011Q4

REPORT INFORMATION
  Report Type: 
  Country: None (occurrence: None)
  Receive Date: 20111115
  Receipt Date: 20111108
  Transmission Date: 20120403
  Serious: Yes (Death, Other)
  Sender: FDA-Public Use
  Company Number: PHHY2011CA75738

PATIENT
  Sex: Male

DRUGS (2)
  1. ZOMETA [Suspect]
     Dosage: 4 MG, EVERY 4 WEEKS
     Route: 042
     Dates: start: 20101028, end: 20110714
  2. ZOMETA [Suspect]
     Indication: METASTASES TO BONE
     Dosage: 4 MG, EVERY 12 WEEKS
     Route: 042
     Dates: start: 20080210

REACTIONS (5)
  - SUBDURAL HAEMATOMA [None]
  - PLATELET DISORDER [None]
  - CEREBRAL HAEMORRHAGE [None]
  - METASTASES TO BONE MARROW [None]
  - CEREBROVASCULAR ACCIDENT [None]
